FAERS Safety Report 15776771 (Version 2)
Quarter: 2019Q1

REPORT INFORMATION
  Report Type: Spontaneous
  Country: US (occurrence: US)
  Receive Date: 20181231
  Receipt Date: 20190102
  Transmission Date: 20190417
  Serious: No
  Sender: FDA-Public Use
  Company Number: US-PFIZER INC-2018524515

PATIENT
  Age: 25 Year
  Sex: Female
  Weight: 59.86 kg

DRUGS (1)
  1. ALPRAZOLAM. [Suspect]
     Active Substance: ALPRAZOLAM
     Indication: MAST CELL ACTIVATION SYNDROME
     Dosage: 0.5 MG, 1X/DAY [FOR 2 WEEKS]
     Route: 048
     Dates: start: 2018, end: 2018

REACTIONS (1)
  - Drug ineffective for unapproved indication [Recovered/Resolved]

NARRATIVE: CASE EVENT DATE: 2018
